FAERS Safety Report 25849107 (Version 2)
Quarter: 2025Q4

REPORT INFORMATION
  Report Type: Spontaneous
  Country: US (occurrence: US)
  Receive Date: 20250925
  Receipt Date: 20251016
  Transmission Date: 20260118
  Serious: No
  Sender: ARDELYX
  Company Number: US-ARDELYX-2025ARDX007273

PATIENT
  Age: 64 Year
  Sex: Female

DRUGS (1)
  1. XPHOZAH [Suspect]
     Active Substance: TENAPANOR HYDROCHLORIDE
     Indication: Hyperphosphataemia
     Dosage: 30 MG, BID
     Route: 048
     Dates: start: 20250602, end: 20250909

REACTIONS (2)
  - Abdominal discomfort [Recovered/Resolved]
  - Incontinence [Recovered/Resolved]

NARRATIVE: CASE EVENT DATE: 20250909
